FAERS Safety Report 11422756 (Version 2)
Quarter: 2015Q4

REPORT INFORMATION
  Report Type: Spontaneous
  Country: JP (occurrence: JP)
  Receive Date: 20150827
  Receipt Date: 20151201
  Transmission Date: 20160304
  Serious: Yes (Death)
  Sender: FDA-Public Use
  Company Number: JP-BAYER-2015-402228

PATIENT
  Age: 53 Year
  Sex: Male
  Weight: 50 kg

DRUGS (3)
  1. WARFARIN [Concomitant]
     Active Substance: WARFARIN
     Indication: ANTICOAGULANT THERAPY
     Dosage: 2.5 MG, QD
     Route: 048
     Dates: start: 20000120, end: 20150505
  2. LASIX [Concomitant]
     Active Substance: FUROSEMIDE
     Indication: CARDIAC FAILURE
     Dosage: 20 MG, QD
     Route: 048
     Dates: start: 20000120, end: 20150505
  3. ADEMPAS [Suspect]
     Active Substance: RIOCIGUAT
     Indication: PULMONARY HYPERTENSION
     Dosage: UNK
     Route: 048
     Dates: start: 20150330, end: 20150501

REACTIONS (4)
  - Respiratory failure [Fatal]
  - Haematemesis [Fatal]
  - Pneumonia [Fatal]
  - Hypoxia [Fatal]

NARRATIVE: CASE EVENT DATE: 201504
